FAERS Safety Report 16784506 (Version 1)
Quarter: 2019Q3

REPORT INFORMATION
  Report Type: Spontaneous
  Country: US (occurrence: US)
  Receive Date: 20190717
  Receipt Date: 20190717
  Transmission Date: 20191005
  Serious: Yes (Hospitalization)
  Sender: FDA-Public Use
  Company Number: None

PATIENT
  Age: 33 Year
  Sex: Male

DRUGS (2)
  1. VANCOMYCIN [Suspect]
     Active Substance: VANCOMYCIN
     Indication: DEVICE RELATED INFECTION
     Route: 042
     Dates: start: 20190620, end: 20190626
  2. VANCOMYCIN [Suspect]
     Active Substance: VANCOMYCIN
     Indication: ARTHRITIS INFECTIVE
     Route: 042
     Dates: start: 20190620, end: 20190626

REACTIONS (6)
  - Pyrexia [None]
  - Tachycardia [None]
  - Drug hypersensitivity [None]
  - Fibrin D dimer increased [None]
  - Post procedural complication [None]
  - Joint swelling [None]

NARRATIVE: CASE EVENT DATE: 20190701
